FAERS Safety Report 12824554 (Version 1)
Quarter: 2016Q4

REPORT INFORMATION
  Report Type: Spontaneous
  Country: US (occurrence: US)
  Receive Date: 20161006
  Receipt Date: 20161006
  Transmission Date: 20170207
  Serious: No
  Sender: FDA-Public Use
  Company Number: US-MYLANLABS-2016M1013760

PATIENT
  Sex: Male

DRUGS (1)
  1. CALCITONIN SALMON. [Suspect]
     Active Substance: CALCITONIN SALMON
     Dosage: 200 IU, QD
     Route: 045

REACTIONS (3)
  - Drug ineffective [None]
  - Incorrect dose administered [Recovered/Resolved]
  - Blood calcium increased [Recovered/Resolved]
